FAERS Safety Report 6643075-1 (Version None)
Quarter: 2010Q1

REPORT INFORMATION
  Report Type: 
  Country: None (occurrence: None)
  Receive Date: 20100319
  Receipt Date: 20100308
  Transmission Date: 20100710
  Serious: Yes (Other)
  Sender: FDA-Public Use
  Company Number: PHEH2010US02949

PATIENT
  Sex: Female

DRUGS (12)
  1. RECLAST [Suspect]
     Dosage: UNK
     Dates: start: 20100114
  2. FEXOFENADINE HCL [Concomitant]
     Dosage: UNK
  3. NOVOLOG [Concomitant]
     Dosage: UNK
  4. LEXAPRO [Concomitant]
     Dosage: UNK
  5. TYLENOL-500 [Concomitant]
     Dosage: UNK
  6. SUCRALFATE [Concomitant]
     Dosage: UNK
  7. FELODIPINE [Concomitant]
     Dosage: UNK
  8. DIOVAN [Concomitant]
     Dosage: UNK
  9. METOPROLOL TARTRATE [Concomitant]
     Dosage: UNK
  10. SPIRONOLACTONE [Concomitant]
     Dosage: UNK
  11. PLAVIX [Concomitant]
     Dosage: UNK
  12. LASIX [Concomitant]
     Dosage: UNK

REACTIONS (4)
  - GAIT DISTURBANCE [None]
  - MALAISE [None]
  - MENTAL IMPAIRMENT [None]
  - MUSCULOSKELETAL STIFFNESS [None]
